FAERS Safety Report 6730425-0 (Version None)
Quarter: 2010Q2

REPORT INFORMATION
  Report Type: 
  Country: None (occurrence: None)
  Receive Date: 20100518
  Receipt Date: 20100511
  Transmission Date: 20101027
  Serious: Yes (Other)
  Sender: FDA-Public Use
  Company Number: B0648816A

PATIENT
  Sex: Female

DRUGS (6)
  1. ARIXTRA [Suspect]
     Indication: THROMBOSIS PROPHYLAXIS
     Dosage: 2.5MG PER DAY
     Route: 058
     Dates: start: 20100326, end: 20100326
  2. PANSPORIN [Suspect]
     Indication: INFECTION PROPHYLAXIS
     Dosage: 2G PER DAY
     Dates: start: 20100325, end: 20100326
  3. SOLETON [Concomitant]
     Route: 048
  4. IRZAIM [Concomitant]
     Route: 048
  5. ISALON [Concomitant]
     Route: 048
  6. ETODOLAC [Concomitant]
     Dates: start: 19770101

REACTIONS (5)
  - ASPARTATE AMINOTRANSFERASE INCREASED [None]
  - BLOOD ALKALINE PHOSPHATASE INCREASED [None]
  - BLOOD CREATINE PHOSPHOKINASE INCREASED [None]
  - BLOOD LACTATE DEHYDROGENASE INCREASED [None]
  - HEPATIC FUNCTION ABNORMAL [None]
